FAERS Safety Report 14158912 (Version 2)
Quarter: 2020Q2

REPORT INFORMATION
  Report Type: Spontaneous
  Country: US (occurrence: US)
  Receive Date: 20171106
  Receipt Date: 20200429
  Transmission Date: 20200713
  Serious: Yes (Other)
  Sender: FDA-Public Use
  Company Number: US-BRISTOL-MYERS SQUIBB COMPANY-BMS-2017-098419

PATIENT
  Sex: Female

DRUGS (1)
  1. ELIQUIS [Suspect]
     Active Substance: APIXABAN
     Indication: CEREBROVASCULAR ACCIDENT PROPHYLAXIS
     Dosage: UNK, BID
     Route: 048

REACTIONS (5)
  - Contusion [Unknown]
  - Intentional product use issue [Unknown]
  - Gait disturbance [Unknown]
  - Vascular occlusion [Unknown]
  - Rectal haemorrhage [Unknown]
